FAERS Safety Report 10028472 (Version 4)
Quarter: 2015Q3

REPORT INFORMATION
  Report Type: Spontaneous
  Country: US (occurrence: US)
  Receive Date: 20140321
  Receipt Date: 20150727
  Transmission Date: 20151125
  Serious: Yes (Other)
  Sender: FDA-Public Use
  Company Number: US-SANOFI-AVENTIS-2012SA037871

PATIENT
  Age: 56 Year
  Sex: Female

DRUGS (1)
  1. PLAVIX [Suspect]
     Active Substance: CLOPIDOGREL BISULFATE
     Indication: CEREBROVASCULAR ACCIDENT
     Route: 048
     Dates: start: 20070901

REACTIONS (3)
  - Gastrointestinal haemorrhage [Unknown]
  - Multiple injuries [Unknown]
  - Asthenia [Unknown]

NARRATIVE: CASE EVENT DATE: 20100601
